FAERS Safety Report 9478809 (Version 2)
Quarter: 2013Q3

REPORT INFORMATION
  Report Type: Report from Study
  Country: JP (occurrence: JP)
  Receive Date: 20130827
  Receipt Date: 20130827
  Transmission Date: 20140515
  Serious: Yes (Hospitalization)
  Sender: FDA-Public Use
  Company Number: JP-009507513-1109USA01393

PATIENT
  Age: 58 Year
  Sex: Male
  Weight: 65.5 kg

DRUGS (3)
  1. VANIPREVIR [Suspect]
     Indication: CHRONIC HEPATITIS C
     Dosage: 300 MG, BID
     Route: 048
     Dates: start: 20110908
  2. PEGINTERFERON ALFA-2B [Suspect]
     Indication: CHRONIC HEPATITIS C
     Dosage: 100 ?G, QW
     Route: 058
     Dates: start: 20110908
  3. RIBAVIRIN [Suspect]
     Indication: CHRONIC HEPATITIS C
     Dosage: 400 MG, BID
     Route: 048
     Dates: start: 20110908

REACTIONS (1)
  - Vomiting [Recovered/Resolved]
